FAERS Safety Report 20960400 (Version 1)
Quarter: 2022Q2

REPORT INFORMATION
  Report Type: Other
  Country: US (occurrence: None)
  Receive Date: 20220615
  Receipt Date: 20220615
  Transmission Date: 20220721
  Serious: No
  Sender: FDA-Public Use
  Company Number: US-ROCHE-3118155

PATIENT
  Sex: Female

DRUGS (1)
  1. OCREVUS [Suspect]
     Active Substance: OCRELIZUMAB
     Indication: Relapsing-remitting multiple sclerosis
     Dosage: (PRESCRIBED AS INFUSE 300 MG (VIAL) IN DAY 1 AND 15 THEN 300 MG (2 VIAL) EVERY 6 MONTHS)?DATE OF TRE
     Route: 065

REACTIONS (1)
  - COVID-19 [Unknown]
